FAERS Safety Report 6944601-5 (Version None)
Quarter: 2010Q3

REPORT INFORMATION
  Report Type: 
  Country: None (occurrence: None)
  Receive Date: 20100827
  Receipt Date: 20100819
  Transmission Date: 20110219
  Serious: Yes (Other)
  Sender: FDA-Public Use
  Company Number: US-PFIZER INC-2010105218

PATIENT
  Sex: Female

DRUGS (2)
  1. VFEND [Suspect]
     Indication: ASPERGILLOSIS
     Dosage: 6 MG/KG, UNK
     Route: 042
  2. VFEND [Suspect]
     Dosage: 4 MG/KG, EVERY 12 H
     Route: 017

REACTIONS (1)
  - HYPOGLYCAEMIA [None]
